FAERS Safety Report 12780136 (Version 1)
Quarter: 2016Q3

REPORT INFORMATION
  Report Type: Spontaneous
  Country: US (occurrence: US)
  Receive Date: 20160925
  Receipt Date: 20160925
  Transmission Date: 20161109
  Serious: Yes (Hospitalization)
  Sender: FDA-Public Use
  Company Number: None

PATIENT
  Age: 28 Year
  Sex: Female
  Weight: 83.25 kg

DRUGS (4)
  1. SERTRALINE [Concomitant]
     Active Substance: SERTRALINE HYDROCHLORIDE
  2. MULTIVITAMINS [Concomitant]
     Active Substance: VITAMINS
  3. METOPROLOL TARTRATE 25 MG [Suspect]
     Active Substance: METOPROLOL TARTRATE
     Indication: VENTRICULAR EXTRASYSTOLES
     Dosage: 30 TABLET TWICE A DAY ORAL
     Route: 048
     Dates: start: 20160922, end: 20160922
  4. HERBAL TEA [Concomitant]

REACTIONS (4)
  - Nausea [None]
  - Palpitations [None]
  - Heart rate increased [None]
  - Dizziness [None]

NARRATIVE: CASE EVENT DATE: 20160923
